FAERS Safety Report 18191701 (Version 3)
Quarter: 2023Q4

REPORT INFORMATION
  Report Type: Report from Study
  Country: JP (occurrence: JP)
  Receive Date: 20200824
  Receipt Date: 20231006
  Transmission Date: 20240110
  Serious: Yes (Hospitalization, Other)
  Sender: FDA-Public Use
  Company Number: JP-CELLTRION INC.-2020JP025649

PATIENT

DRUGS (9)
  1. INFLIXIMAB-DYYB [Suspect]
     Active Substance: INFLIXIMAB-DYYB
     Indication: Crohn^s disease
     Dosage: 320 MG
     Route: 041
     Dates: start: 20181125, end: 20181125
  2. INFLIXIMAB-DYYB [Suspect]
     Active Substance: INFLIXIMAB-DYYB
     Dosage: 325 MG (WEIGHT: 65.0 KG)
     Route: 041
     Dates: start: 20190119, end: 20190119
  3. INFLIXIMAB-DYYB [Suspect]
     Active Substance: INFLIXIMAB-DYYB
     Dosage: 325 MG (WEIGHT: 65.0 KG)
     Route: 041
     Dates: start: 20190309, end: 20190309
  4. INFLIXIMAB-DYYB [Suspect]
     Active Substance: INFLIXIMAB-DYYB
     Dosage: 335 MG (WEIGHT: 67.0KG)
     Route: 041
     Dates: start: 20190511, end: 20190511
  5. INFLIXIMAB-DYYB [Suspect]
     Active Substance: INFLIXIMAB-DYYB
     Dosage: 335 MG
     Route: 041
     Dates: start: 20191116, end: 20191116
  6. INFLIXIMAB-DYYB [Suspect]
     Active Substance: INFLIXIMAB-DYYB
     Dosage: 335 MG
     Route: 041
     Dates: start: 20201226, end: 20201226
  7. INFLIXIMAB-DYYB [Suspect]
     Active Substance: INFLIXIMAB-DYYB
     Dosage: 325 MG (WEIGHT: 65 KG)
     Route: 041
     Dates: start: 20211219, end: 20211219
  8. INFLIXIMAB-DYYB [Suspect]
     Active Substance: INFLIXIMAB-DYYB
     Dosage: 350 MG (WEIGHT: 70 KG)
     Route: 041
     Dates: start: 20221119, end: 20221119
  9. MESALAMINE [Concomitant]
     Active Substance: MESALAMINE
     Dosage: 3000 MILLIGRAM/DAY
     Route: 048

REACTIONS (6)
  - Fracture [Recovered/Resolved]
  - Pneumonia [Recovered/Resolved]
  - Dermatitis psoriasiform [Unknown]
  - Seasonal allergy [Unknown]
  - Hypertension [Not Recovered/Not Resolved]
  - Intentional product use issue [Unknown]

NARRATIVE: CASE EVENT DATE: 20190112
